FAERS Safety Report 12906240 (Version 1)
Quarter: 2016Q4

REPORT INFORMATION
  Report Type: Spontaneous
  Country: US (occurrence: US)
  Receive Date: 20161102
  Receipt Date: 20161102
  Transmission Date: 20170207
  Serious: No
  Sender: FDA-Public Use
  Company Number: None

PATIENT
  Sex: Female

DRUGS (2)
  1. ENTRESTO [Suspect]
     Active Substance: SACUBITRIL\VALSARTAN
     Indication: PRODUCT USED FOR UNKNOWN INDICATION
     Dosage: ENTRESTO 24MG26MG PO 1BID
     Route: 048
     Dates: start: 201607
  2. ENTRESTO [Suspect]
     Active Substance: SACUBITRIL\VALSARTAN
     Indication: ROAD TRAFFIC ACCIDENT
     Dosage: ENTRESTO 24MG26MG PO 1BID
     Route: 048
     Dates: start: 201607

REACTIONS (1)
  - Dizziness [None]
